FAERS Safety Report 20813418 (Version 1)
Quarter: 2022Q2

REPORT INFORMATION
  Report Type: Spontaneous
  Country: PL (occurrence: PL)
  Receive Date: 20220511
  Receipt Date: 20220511
  Transmission Date: 20220721
  Serious: Yes (Death)
  Sender: FDA-Public Use
  Company Number: PL-VELOXIS PHARMACEUTICALS-2022VELPL-000305

PATIENT
  Age: 10 Year
  Sex: Male

DRUGS (8)
  1. TACROLIMUS [Suspect]
     Active Substance: TACROLIMUS
     Indication: Graft versus host disease
     Dosage: UNK, FROM DAY +122
  2. MYCOPHENOLATE MOFETIL [Suspect]
     Active Substance: MYCOPHENOLATE MOFETIL
     Indication: Graft versus host disease
     Dosage: UNK
  3. CYCLOSPORINE [Suspect]
     Active Substance: CYCLOSPORINE
     Indication: Prophylaxis against graft versus host disease
     Dosage: UNK, PRETRANSPLANTATION DAY -1 TO DAY +62
  4. ETANERCEPT [Suspect]
     Active Substance: ETANERCEPT
     Indication: Acute graft versus host disease
     Dosage: UNK (FROM DAY +28 TO DAY +209 POST TRANSPLANTATION
  5. BASILIXIMAB [Suspect]
     Active Substance: BASILIXIMAB
     Indication: Graft versus host disease
     Dosage: UNK, (FROM DAY +37 TO DAY +209)
  6. METHOTREXATE SODIUM [Suspect]
     Active Substance: METHOTREXATE SODIUM
     Indication: Graft versus host disease
     Dosage: UNK, ON POST-TRANSPLANTATION DAYS +1, +3 AND +6
  7. METHYLPREDNISOLONE [Suspect]
     Active Substance: METHYLPREDNISOLONE
     Indication: Graft versus host disease
     Dosage: 2 MG/KG BW, FROM DAY +34 TO DAY +68
  8. VEDOLIZUMAB [Concomitant]
     Active Substance: VEDOLIZUMAB
     Indication: Graft versus host disease
     Dosage: UNK, 2X/DAY, +331 AND +345 POST TRANSPLANTATIONFOR 2 DOSE

REACTIONS (4)
  - Drug ineffective for unapproved indication [Fatal]
  - Off label use [Fatal]
  - Off label use [Unknown]
  - Product use issue [Unknown]
